FAERS Safety Report 5219098-6 (Version None)
Quarter: 2007Q1

REPORT INFORMATION
  Report Type: 
  Country: None (occurrence: None)
  Receive Date: 20070124
  Receipt Date: 20070124
  Transmission Date: 20070707
  Serious: Yes (Hospitalization)
  Sender: FDA-Public Use
  Company Number: None

PATIENT
  Sex: Male
  Weight: 79.3795 kg

DRUGS (2)
  1. CETUXIMAB [Suspect]
     Indication: NEOPLASM MALIGNANT
     Dosage: 495 MG/IV WEEKLY
     Route: 042
     Dates: start: 20070103
  2. CISPLATIN [Suspect]
     Indication: NEOPLASM MALIGNANT
     Dosage: 59 MG/IV WEEKLY
     Route: 042
     Dates: start: 20070103

REACTIONS (2)
  - DYSPHAGIA [None]
  - WEIGHT DECREASED [None]
